FAERS Safety Report 7091364-1 (Version None)
Quarter: 2010Q4

REPORT INFORMATION
  Report Type: 
  Country: None (occurrence: None)
  Receive Date: 20101109
  Receipt Date: 20101108
  Transmission Date: 20110411
  Serious: Yes (Other)
  Sender: FDA-Public Use
  Company Number: A0880670A

PATIENT
  Age: 46 Year
  Sex: Male

DRUGS (9)
  1. ADVAIR DISKUS 100/50 [Suspect]
     Dosage: 1PUFF TWICE PER DAY
     Route: 055
  2. VALPROATE SODIUM [Concomitant]
  3. SIMVASTATIN [Concomitant]
  4. PROVENTIL-HFA [Concomitant]
  5. ASMANEX TWISTHALER [Concomitant]
  6. ACETAMINOPHEN AND HYDROCODONE BITARTRATE [Concomitant]
  7. FLOVENT [Concomitant]
  8. OMEPRAZOLE [Concomitant]
  9. MORPHINE SULFATE [Concomitant]

REACTIONS (3)
  - ASTHMA [None]
  - DRUG INEFFECTIVE [None]
  - PRODUCT QUALITY ISSUE [None]
